FAERS Safety Report 6169306-2 (Version None)
Quarter: 2009Q2

REPORT INFORMATION
  Report Type: 
  Country: None (occurrence: None)
  Receive Date: 20090424
  Receipt Date: 20090408
  Transmission Date: 20091009
  Serious: Yes (Other)
  Sender: FDA-Public Use
  Company Number: 2009001074

PATIENT
  Age: 76 Year
  Sex: Male

DRUGS (1)
  1. TARCEVA [Suspect]
     Dosage: (150 MG, QD), ORAL
     Route: 048
     Dates: start: 20081014

REACTIONS (9)
  - ABDOMINAL PAIN UPPER [None]
  - ALOPECIA [None]
  - ANOREXIA [None]
  - BALANCE DISORDER [None]
  - COUGH [None]
  - DRY SKIN [None]
  - EPISTAXIS [None]
  - HYPOAESTHESIA [None]
  - NAUSEA [None]
